FAERS Safety Report 5228356-0 (Version None)
Quarter: 2007Q1

REPORT INFORMATION
  Report Type: 
  Country: None (occurrence: None)
  Receive Date: 20070131
  Receipt Date: 20070131
  Transmission Date: 20070707
  Serious: No
  Sender: FDA-Public Use
  Company Number: None

PATIENT
  Age: 77 Year
  Sex: Female
  Weight: 34.0198 kg

DRUGS (2)
  1. ZYVOX [Suspect]
     Indication: SEPSIS
     Dosage: 600 MG PO Q 12 HOURS
     Route: 048
     Dates: start: 20070106, end: 20070115
  2. ZYVOX [Suspect]
     Indication: SEPSIS
     Dosage: 600 MG PO Q 12 HOURS
     Route: 048
     Dates: start: 20070115, end: 20070116

REACTIONS (1)
  - THROMBOCYTOPENIA [None]
